FAERS Safety Report 22222819 (Version 1)
Quarter: 2023Q2

REPORT INFORMATION
  Report Type: Spontaneous
  Country: US (occurrence: US)
  Receive Date: 20230418
  Receipt Date: 20230418
  Transmission Date: 20230721
  Serious: No
  Sender: FDA-Public Use
  Company Number: US-AMGEN-USASP2023064179

PATIENT
  Sex: Male

DRUGS (4)
  1. NEULASTA [Suspect]
     Active Substance: PEGFILGRASTIM
     Indication: Prophylaxis
     Dosage: 6 MILLIGRAM
     Route: 058
     Dates: start: 2022
  2. ACETYLCYSTEINE [Concomitant]
     Active Substance: ACETYLCYSTEINE
  3. VITAMIN C [Concomitant]
     Active Substance: ASCORBIC ACID
  4. ALDESLEUKIN [Concomitant]
     Active Substance: ALDESLEUKIN

REACTIONS (2)
  - Headache [Recovering/Resolving]
  - Temporomandibular joint syndrome [Recovering/Resolving]

NARRATIVE: CASE EVENT DATE: 20220901
